FAERS Safety Report 7900595-7 (Version None)
Quarter: 2011Q4

REPORT INFORMATION
  Report Type: 
  Country: None (occurrence: None)
  Receive Date: 20111108
  Receipt Date: 20111031
  Transmission Date: 20120403
  Serious: Yes (Hospitalization)
  Sender: FDA-Public Use
  Company Number: CH-US-EMD SERONO, INC.-7092749

PATIENT
  Sex: Female

DRUGS (3)
  1. IBUPROFEN [Concomitant]
     Indication: ADVERSE EVENT
     Route: 048
     Dates: start: 20090325
  2. REBIF [Suspect]
     Indication: MULTIPLE SCLEROSIS
     Route: 058
     Dates: start: 20090325
  3. ACETAMINOPHEN [Concomitant]
     Indication: ADVERSE EVENT
     Route: 048
     Dates: start: 20110325

REACTIONS (1)
  - NEPHROLITHIASIS [None]
